FAERS Safety Report 4341749-9 (Version None)
Quarter: 2004Q2

REPORT INFORMATION
  Report Type: 
  Country: None (occurrence: None)
  Receive Date: 20040415
  Receipt Date: 20040406
  Transmission Date: 20050107
  Serious: Yes (Hospitalization)
  Sender: FDA-Public Use
  Company Number: CN-JNJFOC-20040402343

PATIENT
  Age: 43 Year
  Sex: Female
  Weight: 62 kg

DRUGS (4)
  1. RISPERDAL [Suspect]
     Indication: SCHIZOPHRENIA
     Dosage: SEE IMAGE
     Dates: start: 20030101, end: 20040124
  2. RISPERDAL [Suspect]
     Indication: SCHIZOPHRENIA
     Dosage: SEE IMAGE
     Dates: start: 20020101
  3. RISPERDAL [Suspect]
     Indication: SCHIZOPHRENIA
     Dosage: SEE IMAGE
     Dates: start: 20020201
  4. ARTANE [Suspect]
     Indication: DRUG USE FOR UNKNOWN INDICATION
     Dosage: ORAL
     Route: 048
     Dates: start: 20020801, end: 20040205

REACTIONS (9)
  - ABASIA [None]
  - DISCOMFORT [None]
  - DRUG INEFFECTIVE [None]
  - FALL [None]
  - LUMBAR VERTEBRAL FRACTURE [None]
  - MUSCULOSKELETAL STIFFNESS [None]
  - PARALYSIS [None]
  - TONGUE DISORDER [None]
  - VISION BLURRED [None]
